FAERS Safety Report 25754132 (Version 1)
Quarter: 2025Q3

REPORT INFORMATION
  Report Type: Spontaneous
  Country: US (occurrence: US)
  Receive Date: 20250903
  Receipt Date: 20250903
  Transmission Date: 20251020
  Serious: Yes (Other)
  Sender: EXELA PHARMA SCIENCES
  Company Number: US-EXELAPHARMA-2025EXLA00170

PATIENT
  Age: 72 Year
  Sex: Male

DRUGS (5)
  1. SODIUM BICARBONATE [Suspect]
     Active Substance: SODIUM BICARBONATE
     Indication: Product used for unknown indication
  2. ERGOCALCIFEROL [Suspect]
     Active Substance: ERGOCALCIFEROL
     Indication: Product used for unknown indication
     Dosage: ONCE IN A MONTH
  3. ALLOPURINOL [Concomitant]
     Active Substance: ALLOPURINOL
  4. LOSARTAN [Concomitant]
     Active Substance: LOSARTAN
  5. SEVELAMER CARBONATE [Concomitant]
     Active Substance: SEVELAMER CARBONATE

REACTIONS (3)
  - Calculus urinary [Unknown]
  - Condition aggravated [Unknown]
  - pH urine increased [Unknown]
